FAERS Safety Report 7971199-5 (Version None)
Quarter: 2011Q4

REPORT INFORMATION
  Report Type: 
  Country: None (occurrence: None)
  Receive Date: 20111212
  Receipt Date: 20111128
  Transmission Date: 20120403
  Serious: No
  Sender: FDA-Public Use
  Company Number: IT-NOVOPROD-339946

PATIENT

DRUGS (4)
  1. VICTOZA [Suspect]
     Indication: TYPE 2 DIABETES MELLITUS
     Dosage: UNK
     Route: 065
     Dates: start: 20110601, end: 20111028
  2. VALSARTAN  AND HYDROCHLOROTHIAZIDE [Concomitant]
     Dosage: 80 A?G, QD
     Route: 048
     Dates: start: 20040101
  3. DIAMICRON [Concomitant]
     Dosage: 90 A?G, QD
     Route: 048
     Dates: start: 20010917
  4. GLUCOPHAGE [Concomitant]
     Dosage: 2000 MG, QD
     Route: 048
     Dates: start: 20010917

REACTIONS (1)
  - PANCREATITIS [None]
